FAERS Safety Report 4372002-5 (Version None)
Quarter: 2004Q2

REPORT INFORMATION
  Report Type: 
  Country: None (occurrence: None)
  Receive Date: 20040602
  Receipt Date: 20040602
  Transmission Date: 20050107
  Serious: Yes (Life-Threatening, Hospitalization)
  Sender: FDA-Public Use
  Company Number: None

PATIENT
  Age: 82 Year
  Sex: Female
  Weight: 84 kg

DRUGS (3)
  1. PHENYTOIN [Suspect]
     Indication: CONVULSION PROPHYLAXIS
     Dosage: ORAL
     Route: 048
     Dates: start: 20030929, end: 20031105
  2. ASPIRIN [Concomitant]
  3. CARAFATE [Concomitant]

REACTIONS (2)
  - ASTHENIA [None]
  - STEVENS-JOHNSON SYNDROME [None]
